FAERS Safety Report 5115652-0 (Version None)
Quarter: 2006Q3

REPORT INFORMATION
  Report Type: 
  Country: None (occurrence: None)
  Receive Date: 20060927
  Receipt Date: 20060922
  Transmission Date: 20061208
  Serious: Yes (Life-Threatening)
  Sender: FDA-Public Use
  Company Number: GB-BRISTOL-MYERS SQUIBB COMPANY-13518741

PATIENT
  Age: 6 Decade
  Sex: Male

DRUGS (2)
  1. ABILIFY [Suspect]
  2. OLANZAPINE [Concomitant]

REACTIONS (2)
  - PSYCHOTIC DISORDER [None]
  - SELF INJURIOUS BEHAVIOUR [None]
